FAERS Safety Report 4897238-6 (Version None)
Quarter: 2006Q1

REPORT INFORMATION
  Report Type: 
  Country: None (occurrence: None)
  Receive Date: 20060127
  Receipt Date: 20060109
  Transmission Date: 20060701
  Serious: Yes (Hospitalization)
  Sender: FDA-Public Use
  Company Number: US_0509121802

PATIENT
  Sex: Female
  Weight: 65.8 kg

DRUGS (2)
  1. ZYPREXA [Suspect]
     Indication: BIPOLAR DISORDER
     Dosage: 5 MG, 2/D, ORAL;  UNK MG, ORAL
     Route: 048
     Dates: start: 20030601, end: 20040301
  2. ZYPREXA [Suspect]
     Indication: BIPOLAR DISORDER
     Dosage: 5 MG, 2/D, ORAL;  UNK MG, ORAL
     Route: 048
     Dates: start: 20040301

REACTIONS (4)
  - DRUG EXPOSURE DURING PREGNANCY [None]
  - GESTATIONAL DIABETES [None]
  - PNEUMONIA [None]
  - PREGNANCY [None]
